FAERS Safety Report 17233106 (Version 1)
Quarter: 2020Q1

REPORT INFORMATION
  Report Type: Spontaneous
  Country: IT (occurrence: IT)
  Receive Date: 20200104
  Receipt Date: 20200104
  Transmission Date: 20200409
  Serious: Yes (Hospitalization)
  Sender: FDA-Public Use
  Company Number: IT-DRREDDYS-GER/ITL/19/0117811

PATIENT
  Age: 82 Year
  Sex: Female

DRUGS (11)
  1. SEQUACOR 2,5 MG COMPRESSE RIVESTITE CON FILM [Concomitant]
     Active Substance: BISOPROLOL FUMARATE
     Indication: PRODUCT USED FOR UNKNOWN INDICATION
  2. STILNOX [Concomitant]
     Active Substance: ZOLPIDEM TARTRATE
     Indication: PRODUCT USED FOR UNKNOWN INDICATION
  3. EUTIROX 150 MICROGRAMMI COMPRESSE [Concomitant]
     Active Substance: LEVOTHYROXINE SODIUM
     Indication: PRODUCT USED FOR UNKNOWN INDICATION
  4. CARDIOASPIRIN 100 MG COMPRESSE GASTRORESISTENTI [Interacting]
     Active Substance: ASPIRIN
     Indication: PROPHYLAXIS
     Route: 048
  5. CORDARONE [Concomitant]
     Active Substance: AMIODARONE HYDROCHLORIDE
     Indication: PRODUCT USED FOR UNKNOWN INDICATION
  6. CLOPIDOGREL [Suspect]
     Active Substance: CLOPIDOGREL BISULFATE
     Indication: PROPHYLAXIS
     Route: 048
  7. LENTO-KALIUM? [Concomitant]
     Indication: PRODUCT USED FOR UNKNOWN INDICATION
  8. PANTOPRAZOLE [Concomitant]
     Active Substance: PANTOPRAZOLE
     Indication: PRODUCT USED FOR UNKNOWN INDICATION
  9. PRADAXA 110MG HARD CAPSULES [Concomitant]
     Indication: PRODUCT USED FOR UNKNOWN INDICATION
  10. COTAREG 80 MG/12,5 MG COMPRESSE RIVESTITE CON FILM [Concomitant]
     Indication: PRODUCT USED FOR UNKNOWN INDICATION
  11. DELTACORTENE 5 MG COMPRESSE [Concomitant]
     Active Substance: PREDNISONE
     Indication: PRODUCT USED FOR UNKNOWN INDICATION

REACTIONS (4)
  - Asthenia [Recovering/Resolving]
  - Tachyarrhythmia [Recovering/Resolving]
  - Epistaxis [Recovering/Resolving]
  - Ecchymosis [Recovering/Resolving]

NARRATIVE: CASE EVENT DATE: 20191024
